FAERS Safety Report 9012091 (Version 1)
Quarter: 2013Q1

REPORT INFORMATION
  Report Type: Spontaneous
  Country: US (occurrence: US)
  Receive Date: 20130114
  Receipt Date: 20130114
  Transmission Date: 20140127
  Serious: Yes (Other)
  Sender: FDA-Public Use
  Company Number: US-ROCHE-731198

PATIENT
  Age: 53 None
  Sex: Female

DRUGS (4)
  1. ACCUTANE [Suspect]
     Indication: ACNE
     Route: 065
  2. ACCUTANE [Suspect]
     Route: 065
  3. ACCUTANE [Suspect]
     Route: 065
  4. ACCUTANE [Suspect]
     Route: 065

REACTIONS (10)
  - Colitis ulcerative [Unknown]
  - Gastrointestinal injury [Unknown]
  - Inflammatory bowel disease [Unknown]
  - Pelvic abscess [Unknown]
  - Depression [Unknown]
  - Proctitis [Unknown]
  - Oral herpes [Unknown]
  - Irritable bowel syndrome [Unknown]
  - Xerosis [Unknown]
  - Cheilitis [Unknown]
